FAERS Safety Report 24036189 (Version 3)
Quarter: 2024Q3

REPORT INFORMATION
  Report Type: Report from Study
  Country: CA (occurrence: None)
  Receive Date: 20240701
  Receipt Date: 20240719
  Transmission Date: 20241017
  Serious: Yes (Other)
  Sender: ASTRAZENECA
  Company Number: 2024A149161

PATIENT
  Sex: Male

DRUGS (3)
  1. FASENRA [Suspect]
     Active Substance: BENRALIZUMAB
     Indication: Asthma
     Dosage: 30.0MG UNKNOWN
     Route: 058
     Dates: start: 20210601
  2. COMBIVENT RESPIMAT [Concomitant]
     Active Substance: ALBUTEROL SULFATE\IPRATROPIUM BROMIDE
  3. SYMBICORT [Concomitant]
     Active Substance: BUDESONIDE\FORMOTEROL FUMARATE DIHYDRATE

REACTIONS (6)
  - Rib fracture [Unknown]
  - Urticaria [Unknown]
  - Urinary tract infection [Unknown]
  - Dyspnoea [Unknown]
  - Drug ineffective [Unknown]
  - Hypersensitivity [Unknown]
